FAERS Safety Report 18416336 (Version 2)
Quarter: 2021Q1

REPORT INFORMATION
  Report Type: Report from Study
  Country: DE (occurrence: DE)
  Receive Date: 20201022
  Receipt Date: 20210119
  Transmission Date: 20210419
  Serious: Yes (Hospitalization, Other)
  Sender: FDA-Public Use
  Company Number: NVSC2020DE281651

PATIENT
  Sex: Male

DRUGS (2)
  1. COSENTYX [Suspect]
     Active Substance: SECUKINUMAB
     Indication: PSORIASIS
     Dosage: 150 MG
     Route: 058
     Dates: start: 20150901, end: 202008
  2. COSENTYX [Suspect]
     Active Substance: SECUKINUMAB
     Dosage: 150 MG, Q4W
     Route: 058
     Dates: start: 2018

REACTIONS (9)
  - Diffuse large B-cell lymphoma [Not Recovered/Not Resolved]
  - Large intestinal haemorrhage [Unknown]
  - Metastases to lymph nodes [Unknown]
  - Lymphadenopathy [Unknown]
  - Splenomegaly [Unknown]
  - Anal abscess [Recovered/Resolved]
  - Urinary tract obstruction [Recovered/Resolved]
  - Abdominal lymphadenopathy [Unknown]
  - Hepatomegaly [Unknown]

NARRATIVE: CASE EVENT DATE: 20190621
